FAERS Safety Report 19468764 (Version 1)
Quarter: 2021Q2

REPORT INFORMATION
  Report Type: Spontaneous
  Country: CA (occurrence: CA)
  Receive Date: 20210628
  Receipt Date: 20210628
  Transmission Date: 20210717
  Serious: Yes (Hospitalization, Other)
  Sender: FDA-Public Use
  Company Number: CA-TEVA-2021-CA-1926303

PATIENT
  Age: 30 Month
  Sex: Male

DRUGS (4)
  1. GABAPENTIN. [Suspect]
     Active Substance: GABAPENTIN
     Indication: PRODUCT USED FOR UNKNOWN INDICATION
     Route: 065
  2. BACLOFEN. [Suspect]
     Active Substance: BACLOFEN
     Indication: DYSTONIA
     Dosage: 15 MILLIGRAM DAILY;
     Route: 048
  3. BACLOFEN. [Suspect]
     Active Substance: BACLOFEN
     Dosage: 30 MILLIGRAM DAILY;
     Route: 048
  4. BACLOFEN. [Suspect]
     Active Substance: BACLOFEN
     Dosage: 2.5 MILLIGRAM DAILY;
     Route: 048

REACTIONS (7)
  - Bradypnoea [Recovered/Resolved]
  - Depressed level of consciousness [Recovered/Resolved]
  - Respiratory rate increased [Recovered/Resolved]
  - Haemodynamic test abnormal [Recovered/Resolved]
  - Toxicity to various agents [Recovered/Resolved]
  - Bradycardia [Recovered/Resolved]
  - Upper airway obstruction [Recovered/Resolved]
